FAERS Safety Report 10621655 (Version 1)
Quarter: 2014Q4

REPORT INFORMATION
  Report Type: Spontaneous
  Country: US (occurrence: None)
  Receive Date: 20141201
  Receipt Date: 20141201
  Transmission Date: 20150529
  Serious: Yes (Other)
  Sender: FDA-Public Use
  Company Number: None

PATIENT
  Age: 77 Year
  Sex: Male
  Weight: 120.2 kg

DRUGS (1)
  1. XTANDI [Suspect]
     Active Substance: ENZALUTAMIDE
     Indication: PROSTATE CANCER
     Dosage: 4PO
     Route: 048
     Dates: start: 20141014

REACTIONS (3)
  - Joint swelling [None]
  - Vascular rupture [None]
  - Rash macular [None]

NARRATIVE: CASE EVENT DATE: 20141104
